FAERS Safety Report 9018298 (Version 1)
Quarter: 2013Q1

REPORT INFORMATION
  Report Type: Spontaneous
  Country: US (occurrence: None)
  Receive Date: 20130111
  Receipt Date: 20130111
  Transmission Date: 20140127
  Serious: No
  Sender: FDA-Public Use
  Company Number: None

PATIENT
  Sex: 0

DRUGS (1)
  1. CVS PHARMACY STOMACH RELIEF CHERRY FLAVOR [Suspect]
     Dates: start: 201212, end: 201212

REACTIONS (7)
  - Nausea [None]
  - Abdominal pain [None]
  - Throat irritation [None]
  - Glossodynia [None]
  - Oral discomfort [None]
  - Hypoaesthesia [None]
  - No reaction on previous exposure to drug [None]
